FAERS Safety Report 7991465-7 (Version None)
Quarter: 2011Q4

REPORT INFORMATION
  Report Type: 
  Country: None (occurrence: None)
  Receive Date: 20111219
  Receipt Date: 20111213
  Transmission Date: 20120403
  Serious: Yes (Other)
  Sender: FDA-Public Use
  Company Number: BR-JNJFOC-20111207526

PATIENT
  Sex: Male
  Weight: 79 kg

DRUGS (4)
  1. CARVEDILOL [Concomitant]
     Indication: PRODUCT USED FOR UNKNOWN INDICATION
     Route: 048
  2. ISOSORBIDE MONONITRATE [Concomitant]
     Indication: PRODUCT USED FOR UNKNOWN INDICATION
     Route: 048
  3. SINVASTATINA [Concomitant]
     Indication: PRODUCT USED FOR UNKNOWN INDICATION
     Route: 048
  4. NICORETTE [Suspect]
     Indication: SMOKING CESSATION THERAPY
     Dosage: APPROXIMATELY FOUR TO FIVE PIECES PER DAY FOR FOUR YEARS
     Route: 048
     Dates: start: 20070101

REACTIONS (4)
  - INTENTIONAL DRUG MISUSE [None]
  - DYSGEUSIA [None]
  - CATHETER PLACEMENT [None]
  - DEPENDENCE [None]
